FAERS Safety Report 4296990-0 (Version None)
Quarter: 2004Q1

REPORT INFORMATION
  Report Type: 
  Country: None (occurrence: None)
  Receive Date: 20040213
  Receipt Date: 20040129
  Transmission Date: 20041129
  Serious: Yes (Death, Hospitalization, Disabling)
  Sender: FDA-Public Use
  Company Number: T03-GER-05233-01

PATIENT
  Age: 82 Year
  Sex: Female

DRUGS (14)
  1. ESCITALOPRAM OXALATE [Suspect]
     Indication: DEPRESSION
     Dosage: 20 MG QD PO
     Route: 048
     Dates: start: 20031029, end: 20031208
  2. ESCITALOPRAM OXALATE [Suspect]
     Indication: DEPRESSION
     Dosage: 20 MG QD PO
     Route: 048
     Dates: start: 20031201, end: 20031210
  3. ACTOS [Suspect]
     Dosage: 30 MG QD
     Dates: end: 20031121
  4. AMARYL [Concomitant]
  5. UNAT (TORASEMIDE) [Concomitant]
  6. GLUCOBAY [Concomitant]
  7. GODAMED [Concomitant]
  8. ENAHEXAL (ENALAPRIL MALEATE) [Concomitant]
  9. GLUCOPHAGE ^ABIC^ (METFORMIN HYDROCHLORIDE) [Concomitant]
  10. ZINCUM (ZINC) [Concomitant]
  11. NEURALGIN [Concomitant]
  12. GINGIUM (GINKO BILOBA EXTRACT) [Concomitant]
  13. LAIF (HYPERICUM EXTRACT) [Concomitant]
  14. REMERGIL (MIRTAZAPINE) [Concomitant]

REACTIONS (16)
  - ANOREXIA [None]
  - ASTHENIA [None]
  - BEDRIDDEN [None]
  - BRONCHITIS ACUTE [None]
  - BRONCHOPNEUMONIA [None]
  - DEPRESSION [None]
  - DIABETES MELLITUS INADEQUATE CONTROL [None]
  - DIET REFUSAL [None]
  - DISTURBANCE IN ATTENTION [None]
  - MARKEDLY REDUCED DIETARY INTAKE [None]
  - MENTAL IMPAIRMENT [None]
  - MULTI-ORGAN FAILURE [None]
  - PSYCHOMOTOR RETARDATION [None]
  - PYREXIA [None]
  - REFUSAL OF TREATMENT BY PATIENT [None]
  - TRANSIENT ISCHAEMIC ATTACK [None]
